FAERS Safety Report 5386630-1 (Version None)
Quarter: 2007Q3

REPORT INFORMATION
  Report Type: 
  Country: None (occurrence: None)
  Receive Date: 20070713
  Receipt Date: 20070712
  Transmission Date: 20080115
  Serious: Yes (Hospitalization)
  Sender: FDA-Public Use
  Company Number: A0663291A

PATIENT
  Sex: Female

DRUGS (1)
  1. AQUAFRESH EXTREME CLEAN ORIGINAL EXPERIENCE + WHITENING TOOTHPASTE [Suspect]
     Indication: DENTAL CLEANING

REACTIONS (6)
  - BLISTER [None]
  - EXPIRED DRUG ADMINISTERED [None]
  - HERPES ZOSTER [None]
  - PHARMACEUTICAL PRODUCT COMPLAINT [None]
  - RASH MACULAR [None]
  - SCAB [None]
